FAERS Safety Report 17654428 (Version 2)
Quarter: 2020Q2

REPORT INFORMATION
  Report Type: Spontaneous
  Country: GR (occurrence: GR)
  Receive Date: 20200410
  Receipt Date: 20200426
  Transmission Date: 20200713
  Serious: Yes (Hospitalization, Other)
  Sender: FDA-Public Use
  Company Number: GR-AUROBINDO-AUR-APL-2020-016831

PATIENT
  Age: 50 Year
  Sex: Male

DRUGS (19)
  1. RETEPLASE [Suspect]
     Active Substance: RETEPLASE
     Indication: THROMBOLYSIS
     Dosage: 10 UNIT (SLOW BOLUS)
     Route: 042
  2. ASPIRIN. [Suspect]
     Active Substance: ASPIRIN
     Indication: ANTIPLATELET THERAPY
     Dosage: 250 MILLIGRAM, SINGLE
     Route: 065
  3. ASPIRIN. [Suspect]
     Active Substance: ASPIRIN
     Dosage: 100 MILLIGRAM, ONCE A DAY
     Route: 065
  4. ENOXAPARIN [Suspect]
     Active Substance: ENOXAPARIN
     Indication: THROMBOLYSIS
     Dosage: 70 MILLIGRAM
     Route: 058
  5. ENOXAPARIN [Suspect]
     Active Substance: ENOXAPARIN
     Dosage: 30 MILLIGRAM, SINGLE
     Route: 042
  6. CLOPIDOGREL [Interacting]
     Active Substance: CLOPIDOGREL BISULFATE
     Dosage: UNK
     Route: 065
  7. ENOXAPARIN [Suspect]
     Active Substance: ENOXAPARIN
     Indication: ANTICOAGULANT THERAPY
     Dosage: 30 MILLIGRAM
     Route: 040
  8. RETEPLASE [Suspect]
     Active Substance: RETEPLASE
     Dosage: 10 UNIT (AFTER 30 MINUTES OF 1ST DOSE)
     Route: 042
  9. FUROSEMIDE. [Concomitant]
     Active Substance: FUROSEMIDE
     Indication: ISCHAEMIC HEART DISEASE PROPHYLAXIS
     Dosage: 20 MILLIGRAM, ONCE A DAY
     Route: 065
  10. PANTOPRAZOLE [Concomitant]
     Active Substance: PANTOPRAZOLE
     Indication: PROPHYLAXIS AGAINST GASTROINTESTINAL ULCER
     Dosage: 20 MILLIGRAM, ONCE A DAY
     Route: 065
  11. RETEPLASE [Suspect]
     Active Substance: RETEPLASE
     Dosage: 20 MILLIGRAM, 1 TOTAL
     Route: 040
  12. TICAGRELOR. [Interacting]
     Active Substance: TICAGRELOR
     Dosage: 90 MILLIGRAM, TWO TIMES A DAY
     Route: 065
  13. CLOPIDOGREL [Suspect]
     Active Substance: CLOPIDOGREL BISULFATE
     Indication: ANTIPLATELET THERAPY
     Dosage: 300 MILLIGRAM, SINGLE
     Route: 065
  14. TICAGRELOR. [Interacting]
     Active Substance: TICAGRELOR
     Dosage: 90 MILLIGRAM, ONCE A DAY
     Route: 065
  15. BISOPROLOL [Concomitant]
     Active Substance: BISOPROLOL
     Indication: ISCHAEMIC HEART DISEASE PROPHYLAXIS
     Dosage: 5 MILLIGRAM, ONCE A DAY
     Route: 065
  16. ATORVASTATIN [Concomitant]
     Active Substance: ATORVASTATIN
     Indication: ISCHAEMIC HEART DISEASE PROPHYLAXIS
     Dosage: 40 MILLIGRAM, ONCE A DAY
     Route: 065
  17. RETEPLASE [Suspect]
     Active Substance: RETEPLASE
     Dosage: 10 MILLIGRAM, 1 TOTAL
     Route: 040
  18. TICAGRELOR. [Interacting]
     Active Substance: TICAGRELOR
     Indication: ANTIPLATELET THERAPY
     Dosage: 180 MILLIGRAM
     Route: 065
  19. ASPIRIN. [Suspect]
     Active Substance: ASPIRIN
     Dosage: 200 MILLIGRAM, ONCE A DAY
     Route: 065

REACTIONS (6)
  - Headache [Recovered/Resolved]
  - Neck pain [Recovered/Resolved]
  - Drug interaction [Unknown]
  - Pain [Recovered/Resolved]
  - Spinal epidural haematoma [Recovered/Resolved]
  - Spinal cord compression [Recovering/Resolving]
